FAERS Safety Report 13682429 (Version 1)
Quarter: 2017Q2

REPORT INFORMATION
  Report Type: Spontaneous
  Country: US (occurrence: US)
  Receive Date: 20170623
  Receipt Date: 20170623
  Transmission Date: 20170830
  Serious: No
  Sender: FDA-Public Use
  Company Number: US-IPSEN BIOPHARMACEUTICALS, INC.-2016-06715

PATIENT
  Sex: Female
  Weight: 53 kg

DRUGS (16)
  1. QUERCETIN [Concomitant]
     Active Substance: QUERCETIN
  2. DYSPORT [Suspect]
     Active Substance: ABOBOTULINUMTOXINA
     Indication: SKIN WRINKLING
     Dosage: 80 UNITS
     Route: 065
     Dates: start: 2016, end: 2016
  3. HORSE CHESTNUT [Concomitant]
     Active Substance: HORSE CHESTNUT
  4. FISH OIL (EPA DHA) [Concomitant]
  5. DYSPORT [Suspect]
     Active Substance: ABOBOTULINUMTOXINA
     Indication: SKIN WRINKLING
     Dosage: NOT REPORTED
     Route: 065
  6. DYSPORT [Suspect]
     Active Substance: ABOBOTULINUMTOXINA
     Indication: PRODUCT USE IN UNAPPROVED INDICATION
  7. PROBIOTIC [Concomitant]
     Active Substance: PROBIOTICS NOS
  8. GINGER ROOT AND MILK THISTLE [Concomitant]
  9. BONE STRENGTH [Concomitant]
  10. BOTOX [Suspect]
     Active Substance: ONABOTULINUMTOXINA
     Indication: SKIN COSMETIC PROCEDURE
     Dosage: NOT REPORTED
     Route: 065
  11. L-GLUTAMINE [Concomitant]
  12. FOOD CAROTENE [Concomitant]
  13. S-ACETYL GLUTATHIONE [Concomitant]
  14. ZYFLAMEND [Concomitant]
  15. VITAMIN D3 [Concomitant]
     Active Substance: CHOLECALCIFEROL
  16. B SUPPLEMENT [Concomitant]

REACTIONS (13)
  - Dysphagia [Unknown]
  - Dysphonia [Unknown]
  - Hypothyroidism [Unknown]
  - Vomiting [Unknown]
  - Drug ineffective [Unknown]
  - Hair growth abnormal [Unknown]
  - Nail growth abnormal [Unknown]
  - Adverse food reaction [Unknown]
  - Neck mass [Unknown]
  - Weight increased [Unknown]
  - Overdose [Unknown]
  - Feeling abnormal [Unknown]
  - Insomnia [Unknown]

NARRATIVE: CASE EVENT DATE: 2013
